FAERS Safety Report 6648161-8 (Version None)
Quarter: 2010Q1

REPORT INFORMATION
  Report Type: 
  Country: None (occurrence: None)
  Receive Date: 20100324
  Receipt Date: 20100311
  Transmission Date: 20100710
  Serious: Yes (Hospitalization)
  Sender: FDA-Public Use
  Company Number: US-ELI_LILLY_AND_COMPANY-US201003003559

PATIENT
  Sex: Female

DRUGS (7)
  1. CYMBALTA [Suspect]
     Indication: DEPRESSION
     Dosage: 30 MG, DAILY (1/D)
  2. ASPIRIN [Concomitant]
  3. SENOKOT [Concomitant]
  4. LYRICA [Concomitant]
  5. NEURONTIN [Concomitant]
  6. FERROUS SULFATE TAB [Concomitant]
  7. VITAMIN D [Concomitant]

REACTIONS (1)
  - CELLULITIS [None]
